FAERS Safety Report 8118804-0 (Version None)
Quarter: 2012Q1

REPORT INFORMATION
  Report Type: 
  Country: None (occurrence: None)
  Receive Date: 20120207
  Receipt Date: 20120130
  Transmission Date: 20120608
  Serious: No
  Sender: FDA-Public Use
  Company Number: US-B.I. PHARMACEUTICALS,INC./RIDGEFIELD-2012-BP-01781BP

PATIENT
  Age: 78 Year
  Sex: Female

DRUGS (1)
  1. SPIRIVA [Suspect]
     Dosage: 18 MCG
     Route: 055
     Dates: start: 20120101

REACTIONS (1)
  - EAR CONGESTION [None]
